FAERS Safety Report 26125907 (Version 1)
Quarter: 2025Q4

REPORT INFORMATION
  Report Type: Report from Study
  Country: MX (occurrence: MX)
  Receive Date: 20251205
  Receipt Date: 20251205
  Transmission Date: 20260118
  Serious: Yes (Hospitalization)
  Sender: ABBVIE
  Company Number: MX-ABBVIE-6574372

PATIENT
  Age: 56 Year
  Sex: Female

DRUGS (1)
  1. RINVOQ [Suspect]
     Active Substance: UPADACITINIB
     Indication: Rheumatoid arthritis
     Dosage: FORM STRENGTH: RINVOQ 15 MG
     Route: 048
     Dates: start: 20251119, end: 20251119

REACTIONS (1)
  - Peripheral swelling [Recovering/Resolving]

NARRATIVE: CASE EVENT DATE: 20250920
